FAERS Safety Report 8415276-3 (Version None)
Quarter: 2012Q2

REPORT INFORMATION
  Report Type: 
  Country: None (occurrence: None)
  Receive Date: 20120323
  Receipt Date: 20111207
  Transmission Date: 20120825
  Serious: Yes (Hospitalization)
  Sender: FDA-Public Use
  Company Number: 163-21880-11121021

PATIENT
  Age: 44 Year
  Sex: Male

DRUGS (8)
  1. HYDROCORTISONE [Concomitant]
  2. ONDANSETRON (ONDANSETRON) (UNKNOWN) [Concomitant]
  3. ASPIRIN [Concomitant]
  4. DEXAMETHASONE [Concomitant]
  5. REVLIMID [Suspect]
     Indication: MULTIPLE MYELOMA
     Dosage: 25 MG, DAILY X 21D/28D, PO 25 MG, DAILY X 21D/28D, PO
     Route: 048
     Dates: start: 20110901, end: 20111114
  6. REVLIMID [Suspect]
     Indication: MULTIPLE MYELOMA
     Dosage: 25 MG, DAILY X 21D/28D, PO 25 MG, DAILY X 21D/28D, PO
     Route: 048
     Dates: start: 20111117, end: 20111101
  7. TEMAZEPAM [Concomitant]
  8. CITALOPRAM HYDROBROMIDE [Concomitant]

REACTIONS (2)
  - PYREXIA [None]
  - PNEUMONIA [None]
